FAERS Safety Report 24184867 (Version 2)
Quarter: 2024Q3

REPORT INFORMATION
  Report Type: Spontaneous
  Country: ES (occurrence: ES)
  Receive Date: 20240807
  Receipt Date: 20240823
  Transmission Date: 20241017
  Serious: Yes (Other)
  Sender: ABBVIE
  Company Number: ES-ABBVIE-5864312

PATIENT
  Sex: Female

DRUGS (1)
  1. CARBOXYMETHYLCELLULOSE [Suspect]
     Active Substance: CARBOXYMETHYLCELLULOSE
     Indication: Dry eye
     Route: 047

REACTIONS (3)
  - Astigmatism [Unknown]
  - Myopia [Unknown]
  - Dry eye [Unknown]
